FAERS Safety Report 6542262-0 (Version None)
Quarter: 2010Q1

REPORT INFORMATION
  Report Type: 
  Country: None (occurrence: None)
  Receive Date: 20100119
  Receipt Date: 20100111
  Transmission Date: 20100710
  Serious: Yes (Other)
  Sender: FDA-Public Use
  Company Number: US-BRISTOL-MYERS SQUIBB COMPANY-14929228

PATIENT
  Age: 57 Year
  Sex: Male

DRUGS (13)
  1. ATAZANAVIR [Interacting]
     Indication: ANTIRETROVIRAL THERAPY
     Dosage: APPROXIMATELY 15MONTHS
  2. RITONAVIR [Interacting]
     Indication: ANTIRETROVIRAL THERAPY
  3. QUETIAPINE [Interacting]
     Dosage: DOSE TITRATED WITH 100MG/D FOR 1 WEEK, 200MG/D FOR 1 WEEK AND THEN 400MG/D
  4. ABACAVIR [Suspect]
     Indication: ANTIRETROVIRAL THERAPY
     Dosage: APPROXIMATELY 15MONTHS
  5. TENOFOVIR [Suspect]
     Indication: ANTIRETROVIRAL THERAPY
     Dosage: APPROXIMATELY 15MONTHS
  6. LAMIVUDINE [Suspect]
     Indication: ANTIRETROVIRAL THERAPY
  7. LITHIUM [Concomitant]
     Indication: BIPOLAR DISORDER
  8. LAMOTRIGINE [Concomitant]
     Indication: BIPOLAR DISORDER
  9. BUPROPION [Concomitant]
     Indication: BIPOLAR DISORDER
  10. OLANZAPINE [Concomitant]
     Indication: BIPOLAR DISORDER
  11. ATENOLOL [Concomitant]
  12. FENOFIBRATE [Concomitant]
  13. FAMOTIDINE [Concomitant]

REACTIONS (5)
  - BLOOD GLUCOSE INCREASED [None]
  - DRUG INTERACTION [None]
  - PLANTAR FASCIITIS [None]
  - SLEEP APNOEA SYNDROME [None]
  - WEIGHT INCREASED [None]
